FAERS Safety Report 6734247-6 (Version None)
Quarter: 2010Q2

REPORT INFORMATION
  Report Type: 
  Country: None (occurrence: None)
  Receive Date: 20100520
  Receipt Date: 20100512
  Transmission Date: 20101027
  Serious: Yes (Hospitalization)
  Sender: FDA-Public Use
  Company Number: PHHO2010US06729

PATIENT
  Sex: Male
  Weight: 96.145 kg

DRUGS (7)
  1. PACLITAXEL COMP-PAC+ [Suspect]
     Indication: METASTATIC MALIGNANT MELANOMA
     Dosage: 967MG
     Route: 042
     Dates: start: 20100414, end: 20100414
  2. AFINITOR [Suspect]
     Indication: METASTATIC MALIGNANT MELANOMA
     Dosage: 5MG
     Route: 048
     Dates: start: 20100414, end: 20100425
  3. CARBOPLATIN COMP-CAB+ [Suspect]
     Indication: METASTATIC MALIGNANT MELANOMA
     Dosage: 972MG
     Route: 042
     Dates: start: 20100414, end: 20100414
  4. KEPPRA [Concomitant]
  5. LISINOPRIL [Concomitant]
     Indication: HYPERTENSION
  6. PRILOSEC [Concomitant]
     Indication: GASTROOESOPHAGEAL REFLUX DISEASE
  7. ZYRTEC [Concomitant]
     Indication: SEASONAL ALLERGY

REACTIONS (4)
  - ASTHENIA [None]
  - FATIGUE [None]
  - FEBRILE NEUTROPENIA [None]
  - PYREXIA [None]
